FAERS Safety Report 9613382 (Version 2)
Quarter: 2013Q4

REPORT INFORMATION
  Report Type: Spontaneous
  Country: DK (occurrence: None)
  Receive Date: 20131008
  Receipt Date: 20131018
  Transmission Date: 20140711
  Serious: Yes (Life-Threatening)
  Sender: FDA-Public Use
  Company Number: DK-GAMBRO-1463360

PATIENT
  Age: 78 Year
  Sex: Male

DRUGS (1)
  1. PRISMASOL [Suspect]
     Dosage: DOSAGE: UNSPECIFIED UNIT, 7, UNSPECIFIED INTERVAL

REACTIONS (6)
  - Air embolism [None]
  - Wrong technique in drug usage process [None]
  - Blood pressure decreased [None]
  - Oxygen saturation decreased [None]
  - Haemorrhage [None]
  - Device breakage [None]
